FAERS Safety Report 11208851 (Version 2)
Quarter: 2015Q3

REPORT INFORMATION
  Report Type: Spontaneous
  Country: US (occurrence: US)
  Receive Date: 20150622
  Receipt Date: 20150710
  Transmission Date: 20151125
  Serious: Yes (Other)
  Sender: FDA-Public Use
  Company Number: US-BAYER-2015-362263

PATIENT
  Age: 31 Year
  Sex: Female
  Weight: 101.59 kg

DRUGS (1)
  1. MIRENA [Suspect]
     Active Substance: LEVONORGESTREL
     Indication: CONTRACEPTION
     Dosage: 20 MCG/24HR, CONT
     Route: 015
     Dates: start: 20150528, end: 20150612

REACTIONS (2)
  - Genital haemorrhage [None]
  - Embedded device [Recovered/Resolved]

NARRATIVE: CASE EVENT DATE: 2015
